FAERS Safety Report 5914854-0 (Version None)
Quarter: 2008Q4

REPORT INFORMATION
  Report Type: 
  Country: None (occurrence: None)
  Receive Date: 20081010
  Receipt Date: 20081001
  Transmission Date: 20090506
  Serious: Yes (Other)
  Sender: FDA-Public Use
  Company Number: PHHY2008GB09654

PATIENT
  Sex: Male

DRUGS (5)
  1. CLOZARIL [Suspect]
     Indication: SCHIZOPHRENIA
     Dosage: 250MG
     Dates: start: 20080429, end: 20080513
  2. CLOZARIL [Suspect]
     Dosage: UNK
     Dates: start: 20081001
  3. CLONAZEPAM [Concomitant]
     Indication: AGITATION
     Dosage: 2 MG, BID
     Route: 048
     Dates: start: 20080513
  4. FLUPENTIXOL [Concomitant]
     Indication: SCHIZOPHRENIA
     Dosage: 6 MG, BID
     Route: 048
     Dates: start: 20080527
  5. FLUPENTIXOL [Concomitant]
     Dosage: 50 MG, BID
     Route: 048
     Dates: start: 20080609

REACTIONS (6)
  - BLOOD CREATINE PHOSPHOKINASE INCREASED [None]
  - BLOOD PRESSURE DECREASED [None]
  - BODY TEMPERATURE INCREASED [None]
  - C-REACTIVE PROTEIN INCREASED [None]
  - GENERAL PHYSICAL CONDITION ABNORMAL [None]
  - NEUROLEPTIC MALIGNANT SYNDROME [None]
